FAERS Safety Report 6379513-1 (Version None)
Quarter: 2009Q3

REPORT INFORMATION
  Report Type: 
  Country: None (occurrence: None)
  Receive Date: 20090928
  Receipt Date: 20090520
  Transmission Date: 20100115
  Serious: Yes (Other)
  Sender: FDA-Public Use
  Company Number: US-ASTRAZENECA-2009UW13028

PATIENT
  Sex: Male

DRUGS (3)
  1. TENORMIN [Suspect]
     Route: 048
  2. NEXIUM [Suspect]
     Route: 048
  3. ZESTRIL [Suspect]
     Route: 048

REACTIONS (1)
  - DIABETES MELLITUS [None]
